FAERS Safety Report 18690941 (Version 3)
Quarter: 2021Q1

REPORT INFORMATION
  Report Type: Report from Study
  Country: ES (occurrence: ES)
  Receive Date: 20210101
  Receipt Date: 20210121
  Transmission Date: 20210419
  Serious: Yes (Hospitalization)
  Sender: FDA-Public Use
  Company Number: ES-ROCHE-2741157

PATIENT
  Age: 60 Year
  Sex: Male
  Weight: 83 kg

DRUGS (14)
  1. COBIMETINIB. [Suspect]
     Active Substance: COBIMETINIB
     Indication: MALIGNANT MELANOMA
     Dosage: RUN?IN PERIOD (CYCLE 1=28 DAYS) AND TRIPLE COMBINATION PERIOD (CYCLE 1 ONWARDS): (THREE TABLETS) (FO
     Route: 048
     Dates: start: 20170818
  2. TRIMETHOPRIM. [Concomitant]
     Active Substance: TRIMETHOPRIM
     Indication: DIARRHOEA
     Route: 048
     Dates: start: 20190508
  3. LIPOCOMB [Concomitant]
     Active Substance: EZETIMIBE\ROSUVASTATIN ZINC
     Indication: BLOOD CHOLESTEROL
     Route: 048
     Dates: start: 20200210
  4. SULFAMETHOXAZOLE [Concomitant]
     Active Substance: SULFAMETHOXAZOLE
     Indication: DIARRHOEA
     Route: 048
     Dates: start: 20190508
  5. INSULIN [Concomitant]
     Active Substance: INSULIN NOS
     Indication: BLOOD GLUCOSE INCREASED
     Route: 058
     Dates: start: 20190530
  6. PREDNISONE. [Concomitant]
     Active Substance: PREDNISONE
     Indication: RENAL FAILURE
     Route: 048
     Dates: start: 20190626
  7. LERCANIDIPINO [Concomitant]
     Indication: HYPERTENSION
     Route: 048
     Dates: start: 20200611
  8. ROSUVASTATINA [Concomitant]
     Active Substance: ROSUVASTATIN
     Indication: HYPERCHOLESTEROLAEMIA
     Route: 048
     Dates: start: 20190213
  9. TELMISARTAN. [Concomitant]
     Active Substance: TELMISARTAN
     Indication: HYPERTENSION
     Route: 048
     Dates: start: 20200728
  10. TRAJENTA [Concomitant]
     Active Substance: LINAGLIPTIN
     Indication: DIABETES MELLITUS
     Route: 048
  11. PHOSPHATE [Concomitant]
     Active Substance: UNSPECIFIED INGREDIENT
     Route: 048
     Dates: start: 20180607
  12. PANTOPRAZOL [Concomitant]
     Active Substance: PANTOPRAZOLE SODIUM
     Indication: GASTRIC ULCER
     Route: 048
     Dates: start: 20200210
  13. PLACEBO [Suspect]
     Active Substance: UNSPECIFIED INGREDIENT
     Indication: MALIGNANT MELANOMA
     Dosage: TRIPLE COMBINATION PERIOD (CYCLE 1 ONWARDS): ON DAY 1 AND 15?MOST RECENT DOSE OF BLINDED ATEZOLIZUMA
     Route: 041
     Dates: start: 20170914
  14. VEMURAFENIB. [Suspect]
     Active Substance: VEMURAFENIB
     Indication: MALIGNANT MELANOMA
     Dosage: RUN?IN PERIOD (CYCLE 1=28 DAYS) AND TRIPLE COMBINATION PERIOD (CYCLE 1 ONWARDS): (FOUR TABLETS)?MOST
     Route: 048
     Dates: start: 20170818

REACTIONS (1)
  - Obstructive pancreatitis [Recovered/Resolved]

NARRATIVE: CASE EVENT DATE: 20201227
